FAERS Safety Report 12789712 (Version 2)
Quarter: 2016Q4

REPORT INFORMATION
  Report Type: Spontaneous
  Country: IR (occurrence: IR)
  Receive Date: 20160928
  Receipt Date: 20161031
  Transmission Date: 20170207
  Serious: Yes (Other)
  Sender: FDA-Public Use
  Company Number: IR-GE HEALTHCARE MEDICAL DIAGNOSTICS-VISP-PR-1609S-0561

PATIENT
  Sex: Female

DRUGS (3)
  1. VISIPAQUE [Suspect]
     Active Substance: IODIXANOL
     Indication: PRODUCT USED FOR UNKNOWN INDICATION
     Route: 005
  2. VISIPAQUE [Suspect]
     Active Substance: IODIXANOL
     Indication: OFF LABEL USE
  3. VISIPAQUE [Suspect]
     Active Substance: IODIXANOL
     Indication: DIAGNOSTIC PROCEDURE

REACTIONS (3)
  - Dystonia [Recovered/Resolved]
  - Hypertonia [Recovered/Resolved]
  - Off label use [Recovered/Resolved]
